FAERS Safety Report 5192492-8 (Version None)
Quarter: 2006Q4

REPORT INFORMATION
  Report Type: 
  Country: None (occurrence: None)
  Receive Date: 20061227
  Receipt Date: 20061218
  Transmission Date: 20070319
  Serious: Yes (Disabling)
  Sender: FDA-Public Use
  Company Number: JP-MERCK-0612USA03445

PATIENT
  Sex: Female

DRUGS (2)
  1. FOSAMAX [Suspect]
     Indication: OSTEOPOROSIS
     Route: 048
     Dates: start: 20061110
  2. CALSLOT [Concomitant]
     Route: 065

REACTIONS (4)
  - ANOREXIA [None]
  - CHOKING SENSATION [None]
  - DIZZINESS [None]
  - JOINT DISLOCATION [None]
